FAERS Safety Report 4975574-2 (Version None)
Quarter: 2006Q1

REPORT INFORMATION
  Report Type: 
  Country: None (occurrence: None)
  Receive Date: 20060222
  Receipt Date: 20050810
  Transmission Date: 20060701
  Serious: Yes (Hospitalization, Other)
  Sender: FDA-Public Use
  Company Number: HQWYE853511AUG05

PATIENT
  Age: 50 Year
  Sex: Male
  Weight: 104.42 kg

DRUGS (5)
  1. PROTONIX [Suspect]
     Indication: OESOPHAGEAL SPASM
     Dosage: 40 MG 1 X PER 1 DAY, ORAL
     Route: 048
     Dates: end: 20050701
  2. ZEBETA [Concomitant]
  3. HYTRIN [Concomitant]
  4. ALTACE [Concomitant]
  5. TOPROL-XL [Concomitant]

REACTIONS (2)
  - CHEST DISCOMFORT [None]
  - CHEST PAIN [None]
